FAERS Safety Report 9469558 (Version 2)
Quarter: 2013Q3

REPORT INFORMATION
  Report Type: Spontaneous
  Country: US (occurrence: US)
  Receive Date: 20130822
  Receipt Date: 20130822
  Transmission Date: 20140515
  Serious: Yes (Hospitalization)
  Sender: FDA-Public Use
  Company Number: US-BIOGENIDEC-2013BI064869

PATIENT
  Age: 58 Year
  Sex: Female

DRUGS (2)
  1. TECFIDERA [Suspect]
     Indication: MULTIPLE SCLEROSIS
     Route: 048
     Dates: start: 201304
  2. TECFIDERA [Suspect]
     Indication: NEUROMYELITIS OPTICA
     Route: 048
     Dates: start: 201304

REACTIONS (4)
  - Abasia [Not Recovered/Not Resolved]
  - Myelitis [Unknown]
  - Off label use [Unknown]
  - Neuromyelitis optica [Not Recovered/Not Resolved]
